FAERS Safety Report 7887002-8 (Version None)
Quarter: 2011Q4

REPORT INFORMATION
  Report Type: 
  Country: None (occurrence: None)
  Receive Date: 20111102
  Receipt Date: 20110713
  Transmission Date: 20120403
  Serious: No
  Sender: FDA-Public Use
  Company Number: US-AMGEN-USASP2011000356

PATIENT
  Age: 56 Year
  Sex: Male
  Weight: 83.9 kg

DRUGS (3)
  1. ENBREL [Suspect]
     Indication: RHEUMATOID ARTHRITIS
     Dosage: 50 MG, QWK
     Dates: start: 20090522, end: 20110509
  2. FLECTOR                            /00372302/ [Concomitant]
     Dosage: UNK
     Dates: start: 20100809
  3. METHOTREXATE [Concomitant]
     Dosage: 7.5 MG, UNK
     Dates: start: 20110101

REACTIONS (12)
  - EAR CANAL ERYTHEMA [None]
  - PYREXIA [None]
  - EAR DISCOMFORT [None]
  - THROAT IRRITATION [None]
  - OEDEMA PERIPHERAL [None]
  - UPPER RESPIRATORY TRACT INFECTION [None]
  - CHEST DISCOMFORT [None]
  - SNEEZING [None]
  - MUCOSAL DISCOLOURATION [None]
  - AURICULAR SWELLING [None]
  - RHINORRHOEA [None]
  - RHINITIS ALLERGIC [None]
